FAERS Safety Report 7593790-0 (Version None)
Quarter: 2011Q3

REPORT INFORMATION
  Report Type: 
  Country: None (occurrence: None)
  Receive Date: 20110706
  Receipt Date: 20110624
  Transmission Date: 20111222
  Serious: Yes (Other)
  Sender: FDA-Public Use
  Company Number: FR-UCBSA-025752

PATIENT
  Sex: Female
  Weight: 93 kg

DRUGS (5)
  1. NICARDIPINE HCL [Concomitant]
     Route: 048
     Dates: start: 20110301
  2. VIMPAT [Suspect]
     Indication: EPILEPSY
     Route: 048
     Dates: start: 20100701
  3. TEGRETOL [Concomitant]
     Route: 048
  4. TEGRETOL [Concomitant]
     Indication: EPILEPSY
     Route: 048
  5. VIMPAT [Suspect]
     Route: 048
     Dates: start: 20100101

REACTIONS (4)
  - GESTATIONAL HYPERTENSION [None]
  - PREGNANCY [None]
  - MATERNAL EXPOSURE DURING PREGNANCY [None]
  - CAESAREAN SECTION [None]
